FAERS Safety Report 8105637-4 (Version None)
Quarter: 2012Q1

REPORT INFORMATION
  Report Type: 
  Country: None (occurrence: None)
  Receive Date: 20120201
  Receipt Date: 20120123
  Transmission Date: 20120608
  Serious: Yes (Other)
  Sender: FDA-Public Use
  Company Number: US-ASTRAZENECA-2011SE70830

PATIENT
  Age: 70 Year
  Sex: Male

DRUGS (8)
  1. DOXAZOSIN [Concomitant]
  2. PRILOSEC [Concomitant]
  3. MULTI-VITAMINS [Concomitant]
     Dosage: DAILY
  4. METAMUCIL-2 [Concomitant]
     Dosage: 2 TSP DAILY
  5. SYMBICORT [Concomitant]
     Dosage: 160/4.5 DAILY
  6. GLUCOSAMINE SULFATE [Concomitant]
  7. SYMBICORT [Suspect]
     Route: 055
  8. OMEGA THREE FISH OIL [Concomitant]

REACTIONS (1)
  - LUNG DISORDER [None]
